FAERS Safety Report 14552602 (Version 1)
Quarter: 2018Q1

REPORT INFORMATION
  Report Type: Spontaneous
  Country: JP (occurrence: JP)
  Receive Date: 20180220
  Receipt Date: 20180220
  Transmission Date: 20180509
  Serious: Yes (Other)
  Sender: FDA-Public Use
  Company Number: JP-NOVAST LABORATORIES, LTD-JP-2018NOV000093

PATIENT
  Age: 51 Year
  Sex: Male

DRUGS (4)
  1. NIFEDIPINE. [Suspect]
     Active Substance: NIFEDIPINE
     Indication: ARTERIOSPASM CORONARY
     Dosage: UNK
     Route: 048
  2. ISOSORBIDE DINITRA [Concomitant]
     Indication: ARTERIOSPASM CORONARY
     Dosage: UNK
     Route: 048
  3. NICORANDIL [Suspect]
     Active Substance: NICORANDIL
     Indication: ARTERIOSPASM CORONARY
     Dosage: UNK
     Route: 048
  4. TACROLIMUS. [Suspect]
     Active Substance: TACROLIMUS
     Indication: COLITIS ULCERATIVE
     Dosage: 8 MG, QD

REACTIONS (2)
  - Arteriospasm coronary [Recovered/Resolved]
  - Drug interaction [Recovered/Resolved]
